FAERS Safety Report 16204352 (Version 4)
Quarter: 2019Q2

REPORT INFORMATION
  Report Type: Spontaneous
  Country: PT (occurrence: PT)
  Receive Date: 20190416
  Receipt Date: 20190620
  Transmission Date: 20190711
  Serious: Yes (Hospitalization, Other)
  Sender: FDA-Public Use
  Company Number: PHHY2019PT086757

PATIENT
  Age: 18 Month
  Sex: Male
  Weight: 8.3 kg

DRUGS (26)
  1. VANCOMYCIN [Suspect]
     Active Substance: VANCOMYCIN
     Indication: STAPHYLOCOCCAL INFECTION
     Route: 042
  2. GENTAMICIN. [Suspect]
     Active Substance: GENTAMICIN
     Indication: PSEUDOMONAS INFECTION
  3. FLUCONAZOLE. [Concomitant]
     Active Substance: FLUCONAZOLE
     Indication: DEVICE RELATED INFECTION
     Dosage: UNK
     Route: 042
  4. VANCOMYCIN [Suspect]
     Active Substance: VANCOMYCIN
     Indication: STAPHYLOCOCCAL INFECTION
  5. VANCOMYCIN [Suspect]
     Active Substance: VANCOMYCIN
     Indication: DEVICE RELATED INFECTION
  6. GENTAMICIN. [Suspect]
     Active Substance: GENTAMICIN
     Indication: CANDIDA INFECTION
  7. GENTAMICIN. [Suspect]
     Active Substance: GENTAMICIN
     Indication: CANDIDA INFECTION
  8. METRONIDAZOLE. [Concomitant]
     Active Substance: METRONIDAZOLE
     Indication: DEVICE RELATED INFECTION
     Dosage: UNK
     Route: 042
  9. PIPERACILLIN AND TAZOBACTAM [Suspect]
     Active Substance: PIPERACILLIN SODIUM\TAZOBACTAM SODIUM
     Indication: DEVICE RELATED INFECTION
     Route: 065
  10. VANCOMYCIN [Suspect]
     Active Substance: VANCOMYCIN
     Indication: PSEUDOMONAS INFECTION
  11. GENTAMICIN. [Suspect]
     Active Substance: GENTAMICIN
     Indication: STAPHYLOCOCCAL INFECTION
     Route: 042
  12. FLUCONAZOLE. [Concomitant]
     Active Substance: FLUCONAZOLE
     Indication: CANDIDA INFECTION
  13. GENTAMICIN. [Suspect]
     Active Substance: GENTAMICIN
     Indication: DEVICE RELATED INFECTION
  14. AMPHOTERICIN B. [Suspect]
     Active Substance: AMPHOTERICIN B
     Indication: PSEUDOMONAS INFECTION
     Dosage: UNK
     Route: 042
  15. CEFTAZIDIME. [Concomitant]
     Active Substance: CEFTAZIDIME
     Indication: PSEUDOMONAS INFECTION
  16. AMPHOTERICIN B. [Suspect]
     Active Substance: AMPHOTERICIN B
     Indication: PSEUDOMONAS INFECTION
  17. AMPHOTERICIN B. [Suspect]
     Active Substance: AMPHOTERICIN B
     Indication: DEVICE RELATED INFECTION
  18. FLUCONAZOLE. [Concomitant]
     Active Substance: FLUCONAZOLE
     Indication: PSEUDOMONAS INFECTION
  19. CEFTAZIDIME. [Concomitant]
     Active Substance: CEFTAZIDIME
     Indication: DEVICE RELATED INFECTION
  20. GENTAMICIN. [Suspect]
     Active Substance: GENTAMICIN
     Indication: PSEUDOMONAS INFECTION
  21. AMPHOTERICIN B. [Suspect]
     Active Substance: AMPHOTERICIN B
     Indication: CANDIDA INFECTION
  22. CEFTAZIDIME. [Concomitant]
     Active Substance: CEFTAZIDIME
     Indication: CANDIDA INFECTION
  23. METRONIDAZOLE. [Concomitant]
     Active Substance: METRONIDAZOLE
     Indication: PSEUDOMONAS INFECTION
  24. VANCOMYCIN [Suspect]
     Active Substance: VANCOMYCIN
     Indication: CANDIDA INFECTION
  25. CEFTAZIDIME. [Concomitant]
     Active Substance: CEFTAZIDIME
     Indication: PSEUDOMONAS INFECTION
     Dosage: UNK
     Route: 042
  26. METRONIDAZOLE. [Concomitant]
     Active Substance: METRONIDAZOLE
     Indication: CANDIDA INFECTION

REACTIONS (11)
  - Nephropathy toxic [Recovering/Resolving]
  - Ascites [Recovering/Resolving]
  - Renal tubular dysfunction [Unknown]
  - Pleural effusion [Recovering/Resolving]
  - Generalised oedema [Recovering/Resolving]
  - Metabolic acidosis [Recovering/Resolving]
  - Product use issue [Unknown]
  - Acute kidney injury [Recovered/Resolved]
  - Oliguria [Recovering/Resolving]
  - Respiratory alkalosis [Recovering/Resolving]
  - Weight increased [Recovering/Resolving]
